FAERS Safety Report 25211214 (Version 6)
Quarter: 2025Q3

REPORT INFORMATION
  Report Type: Report from Study
  Country: CA (occurrence: CA)
  Receive Date: 20250417
  Receipt Date: 20250730
  Transmission Date: 20251021
  Serious: Yes (Hospitalization, Other)
  Sender: SAMSUNG BIOEPIS
  Company Number: CA-SAMSUNG BIOEPIS-SB-2025-13431

PATIENT
  Age: 62 Year
  Sex: Female

DRUGS (11)
  1. RENFLEXIS [Suspect]
     Active Substance: INFLIXIMAB-ABDA
     Indication: Psoriatic arthropathy
     Route: 042
     Dates: start: 20250401, end: 20250609
  2. AMLODIPINE [Concomitant]
     Active Substance: AMLODIPINE BESYLATE
     Indication: Product used for unknown indication
  3. PANTOPRAZOLE [Concomitant]
     Active Substance: PANTOPRAZOLE
     Indication: Product used for unknown indication
  4. SYNTHROID [Concomitant]
     Active Substance: LEVOTHYROXINE SODIUM
     Indication: Product used for unknown indication
  5. ATENOLOL [Concomitant]
     Active Substance: ATENOLOL
     Indication: Product used for unknown indication
  6. ATORVASTATIN [Concomitant]
     Active Substance: ATORVASTATIN
     Indication: Product used for unknown indication
  7. RAMIPRIL [Concomitant]
     Active Substance: RAMIPRIL
     Indication: Product used for unknown indication
  8. ASPIRIN [Concomitant]
     Active Substance: ASPIRIN
     Indication: Product used for unknown indication
  9. FERROUS SULFATE [Concomitant]
     Active Substance: FERROUS SULFATE
     Indication: Product used for unknown indication
  10. PREDNISONE [Concomitant]
     Active Substance: PREDNISONE
     Indication: Product used for unknown indication
  11. TRESIBA [Concomitant]
     Active Substance: INSULIN DEGLUDEC
     Indication: Product used for unknown indication

REACTIONS (17)
  - Cystitis [Recovered/Resolved]
  - Kidney infection [Unknown]
  - Renal impairment [Unknown]
  - Arthritis infective [Recovered/Resolved]
  - Cough [Unknown]
  - Peripheral swelling [Unknown]
  - Mobility decreased [Unknown]
  - Chills [Unknown]
  - Gastrointestinal disorder [Unknown]
  - Influenza [Unknown]
  - Oropharyngeal discomfort [Unknown]
  - Flatulence [Unknown]
  - Abdominal pain upper [Unknown]
  - Headache [Unknown]
  - Gastroenteritis viral [Recovered/Resolved]
  - Back pain [Unknown]
  - Ligament sprain [Unknown]

NARRATIVE: CASE EVENT DATE: 20250401
